FAERS Safety Report 9585288 (Version 1)
Quarter: 2013Q4

REPORT INFORMATION
  Report Type: Spontaneous
  Country: US (occurrence: US)
  Receive Date: 20131002
  Receipt Date: 20131002
  Transmission Date: 20140711
  Serious: No
  Sender: FDA-Public Use
  Company Number: US-AMGEN-USASP2013064048

PATIENT
  Age: 51 Year
  Sex: Female
  Weight: 56.24 kg

DRUGS (8)
  1. ENBREL [Suspect]
     Indication: PRODUCT USED FOR UNKNOWN INDICATION
     Dosage: 50 MG, QWK
     Route: 058
  2. DILAUDID [Concomitant]
     Dosage: 2 MG, UNK
  3. KLONOPIN [Concomitant]
     Dosage: 1 MG, UNK
  4. HYDROCODONE/HOMATROP [Concomitant]
     Dosage: UNK
  5. PREDNISONE [Concomitant]
     Dosage: 5 MG, UNK
  6. ESTRACE [Concomitant]
     Dosage: 2 MG, UNK
  7. VITAMIN D                          /00107901/ [Concomitant]
     Dosage: 400 UNIT, UNK
  8. VITAMIN C                          /00008001/ [Concomitant]
     Dosage: 1000 MG, UNK

REACTIONS (2)
  - Injection site bruising [Unknown]
  - Increased tendency to bruise [Unknown]
